FAERS Safety Report 4883210-9 (Version None)
Quarter: 2006Q1

REPORT INFORMATION
  Report Type: 
  Country: None (occurrence: None)
  Receive Date: 20060117
  Receipt Date: 20060117
  Transmission Date: 20060701
  Serious: Yes (Hospitalization)
  Sender: FDA-Public Use
  Company Number: None

PATIENT
  Age: 41 Year
  Sex: Male

DRUGS (1)
  1. LISINOPRIL [Suspect]
     Indication: HYPERTENSION
     Dosage: ORAL; 10.0 MILLIGRAM

REACTIONS (8)
  - DISCOMFORT [None]
  - ERYTHEMA [None]
  - LOCALISED OEDEMA [None]
  - NASOPHARYNGEAL DISORDER [None]
  - PAIN [None]
  - PHARYNGEAL OEDEMA [None]
  - SPEECH DISORDER [None]
  - SWELLING [None]
